FAERS Safety Report 9803478 (Version 1)
Quarter: 2014Q1

REPORT INFORMATION
  Report Type: Spontaneous
  Country: FR (occurrence: FR)
  Receive Date: 20140108
  Receipt Date: 20140108
  Transmission Date: 20141002
  Serious: Yes (Other)
  Sender: FDA-Public Use
  Company Number: FR-009507513-1401FRA001250

PATIENT
  Age: 80 Year
  Sex: Female
  Weight: 43.5 kg

DRUGS (4)
  1. COZAAR 50 MG, COMPRIM? PELLICUL? [Suspect]
     Indication: HYPERTENSION
     Dosage: 1 DF, QD
     Route: 048
     Dates: start: 1994
  2. DETROL [Concomitant]
     Indication: PRODUCT USED FOR UNKNOWN INDICATION
  3. DOLIPRANE [Concomitant]
     Indication: PRODUCT USED FOR UNKNOWN INDICATION
  4. OROCAL [Concomitant]
     Indication: PRODUCT USED FOR UNKNOWN INDICATION

REACTIONS (3)
  - Cardiac arrest [Unknown]
  - Fall [Unknown]
  - Tachycardia [Unknown]
